FAERS Safety Report 14786663 (Version 1)
Quarter: 2018Q2

REPORT INFORMATION
  Report Type: Spontaneous
  Country: US (occurrence: US)
  Receive Date: 20180420
  Receipt Date: 20180420
  Transmission Date: 20180711
  Serious: Yes (Other)
  Sender: FDA-Public Use
  Company Number: US-ALLERGAN-1821984US

PATIENT
  Sex: Female

DRUGS (1)
  1. ESTRACE [Suspect]
     Active Substance: ESTRADIOL
     Indication: LOSS OF LIBIDO
     Route: 065

REACTIONS (3)
  - Suicidal ideation [Unknown]
  - Drug ineffective for unapproved indication [Unknown]
  - Off label use [Unknown]
